FAERS Safety Report 6898401-5 (Version None)
Quarter: 2010Q3

REPORT INFORMATION
  Report Type: 
  Country: None (occurrence: None)
  Receive Date: 20100802
  Receipt Date: 20071003
  Transmission Date: 20110219
  Serious: No
  Sender: FDA-Public Use
  Company Number: US-PFIZER INC-2007083166

PATIENT
  Sex: Female
  Weight: 67.3 kg

DRUGS (6)
  1. LYRICA [Suspect]
     Indication: FIBROMYALGIA
     Dates: start: 20070929, end: 20070930
  2. ULTRAM [Concomitant]
  3. BACLOFEN [Concomitant]
  4. ATIVAN [Concomitant]
  5. DETROL [Concomitant]
  6. FLEXERIL [Concomitant]

REACTIONS (8)
  - APHASIA [None]
  - CHEST PAIN [None]
  - EUPHORIC MOOD [None]
  - FEAR [None]
  - FEELING ABNORMAL [None]
  - LETHARGY [None]
  - MUSCULOSKELETAL DISCOMFORT [None]
  - NAUSEA [None]
